FAERS Safety Report 9818627 (Version 1)
Quarter: 2014Q1

REPORT INFORMATION
  Report Type: Spontaneous
  Country: FR (occurrence: FR)
  Receive Date: 20140115
  Receipt Date: 20140115
  Transmission Date: 20141002
  Serious: Yes (Hospitalization)
  Sender: FDA-Public Use
  Company Number: FR-SA-2014SA001770

PATIENT
  Age: 68 Year
  Sex: Female

DRUGS (5)
  1. LOVENOX [Suspect]
     Indication: PULMONARY EMBOLISM
     Route: 042
     Dates: start: 20130708, end: 20130717
  2. LOVENOX [Suspect]
     Indication: DEEP VEIN THROMBOSIS
     Route: 042
     Dates: start: 20130708, end: 20130717
  3. HEPARINE [Suspect]
     Indication: PULMONARY EMBOLISM
     Route: 042
     Dates: start: 20130707, end: 20130708
  4. HEPARINE [Suspect]
     Indication: DEEP VEIN THROMBOSIS
     Route: 042
     Dates: start: 20130707, end: 20130708
  5. ORGARAN [Concomitant]
     Dosage: STRENGTH: 750 IU ANTI/XA/0.6 ML

REACTIONS (2)
  - Anti-platelet antibody positive [Recovered/Resolved]
  - Heparin-induced thrombocytopenia [Recovered/Resolved]
